FAERS Safety Report 10078400 (Version 1)
Quarter: 2014Q2

REPORT INFORMATION
  Report Type: Spontaneous
  Country: US (occurrence: None)
  Receive Date: 20140401
  Receipt Date: 20140401
  Transmission Date: 20141212
  Serious: Yes (Other)
  Sender: FDA-Public Use
  Company Number: BR13-392-AE

PATIENT
  Age: 48 Year
  Sex: Female
  Weight: 61.24 kg

DRUGS (4)
  1. SPIRONOLACTONE [Suspect]
     Indication: HYPERANDROGENISM
     Route: 048
     Dates: start: 201301, end: 20131007
  2. THYROID MEDS COMPONENT T3 [Concomitant]
  3. ESTRADIOL [Concomitant]
  4. PROGESTERONE [Concomitant]

REACTIONS (10)
  - Drug ineffective [None]
  - Alopecia [None]
  - Hair growth abnormal [None]
  - Acne [None]
  - Seborrhoea [None]
  - Product quality issue [None]
  - Androgenetic alopecia [None]
  - Renal disorder [None]
  - Renal failure chronic [None]
  - Product substitution issue [None]
